FAERS Safety Report 5029590-5 (Version None)
Quarter: 2006Q2

REPORT INFORMATION
  Report Type: 
  Country: None (occurrence: None)
  Receive Date: 20060616
  Receipt Date: 20060616
  Transmission Date: 20061013
  Serious: Yes (Other)
  Sender: FDA-Public Use
  Company Number: None

PATIENT
  Age: 16 Year
  Sex: Male

DRUGS (2)
  1. TUBERSOL [Suspect]
     Dosage: INTRADERMAL /LEFT FOREARM
     Route: 023
     Dates: start: 20060612
  2. TDAP(APACEL) [Suspect]
     Dosage: IM /LEFT DELTOID

REACTIONS (4)
  - BRADYCARDIA [None]
  - HYPOTENSION [None]
  - OXYGEN SATURATION DECREASED [None]
  - SYNCOPE VASOVAGAL [None]
